FAERS Safety Report 7341637-X (Version None)
Quarter: 2011Q1

REPORT INFORMATION
  Report Type: 
  Country: None (occurrence: None)
  Receive Date: 20110309
  Receipt Date: 20110304
  Transmission Date: 20110831
  Serious: Yes (Hospitalization, Other)
  Sender: FDA-Public Use
  Company Number: US-PFIZER INC-2010141237

PATIENT
  Sex: Female

DRUGS (3)
  1. SEROQUEL [Concomitant]
     Indication: DEPRESSION
     Dosage: UNK
     Dates: start: 20060912, end: 20090401
  2. CHANTIX [Suspect]
     Indication: SMOKING CESSATION THERAPY
     Dosage: (2) .5 MG PILLS DAILY
     Dates: start: 20070901, end: 20081101
  3. SEROQUEL [Concomitant]
     Indication: BIPOLAR DISORDER

REACTIONS (6)
  - DEPRESSION [None]
  - SUICIDE ATTEMPT [None]
  - INTENTIONAL SELF-INJURY [None]
  - IRRITABILITY [None]
  - ANGER [None]
  - THINKING ABNORMAL [None]
